FAERS Safety Report 24035943 (Version 1)
Quarter: 2024Q3

REPORT INFORMATION
  Report Type: Spontaneous
  Country: AT (occurrence: AT)
  Receive Date: 20240701
  Receipt Date: 20240701
  Transmission Date: 20241017
  Serious: Yes (Other)
  Sender: GLAXOSMITHKLINE
  Company Number: None

PATIENT

DRUGS (42)
  1. WELLBUTRIN [Suspect]
     Active Substance: BUPROPION HYDROCHLORIDE
     Indication: Product used for unknown indication
     Dosage: 300 MG, UNK
     Route: 065
     Dates: start: 20170111, end: 20170117
  2. WELLBUTRIN [Suspect]
     Active Substance: BUPROPION HYDROCHLORIDE
     Dosage: 150 MG, UNK
     Route: 065
     Dates: start: 20161207, end: 20161215
  3. WELLBUTRIN [Suspect]
     Active Substance: BUPROPION HYDROCHLORIDE
     Dosage: 150 MG, UNK
     Route: 065
     Dates: start: 20161227, end: 20170110
  4. WELLBUTRIN [Suspect]
     Active Substance: BUPROPION HYDROCHLORIDE
     Dosage: 150 MG, UNK
     Route: 065
  5. WELLBUTRIN [Suspect]
     Active Substance: BUPROPION HYDROCHLORIDE
     Dosage: 150 UNK
     Route: 065
     Dates: start: 20170118
  6. LAMICTAL [Suspect]
     Active Substance: LAMOTRIGINE
     Indication: Product used for unknown indication
     Dosage: 200 MG, UNK
     Route: 065
     Dates: start: 20170124
  7. LAMICTAL [Suspect]
     Active Substance: LAMOTRIGINE
     Dosage: 225 MG, UNK
     Route: 065
     Dates: start: 20170109, end: 20170109
  8. LAMICTAL [Suspect]
     Active Substance: LAMOTRIGINE
     Dosage: 175 MG, UNK
     Route: 065
     Dates: start: 20170117, end: 20170123
  9. LAMICTAL [Suspect]
     Active Substance: LAMOTRIGINE
     Dosage: 100 MG, UNK
     Route: 065
     Dates: start: 20161227, end: 20170102
  10. LAMICTAL [Suspect]
     Active Substance: LAMOTRIGINE
     Dosage: 75 MG, UNK
     Route: 065
     Dates: start: 20161220, end: 20161226
  11. LAMICTAL [Suspect]
     Active Substance: LAMOTRIGINE
     Dosage: 50 MG, UNK
     Route: 065
     Dates: start: 20161213, end: 20161219
  12. LAMICTAL [Suspect]
     Active Substance: LAMOTRIGINE
     Dosage: 25 MG, UNK
     Route: 065
     Dates: start: 201611, end: 20161212
  13. LAMICTAL [Suspect]
     Active Substance: LAMOTRIGINE
     Dosage: 125 MG, UNK
     Route: 065
     Dates: start: 20170103, end: 20170108
  14. LAMICTAL [Suspect]
     Active Substance: LAMOTRIGINE
     Dosage: 150 MG, UNK
     Route: 065
     Dates: start: 20170110, end: 20170116
  15. VENLAFAXINE [Suspect]
     Active Substance: VENLAFAXINE HYDROCHLORIDE
     Indication: Product used for unknown indication
     Dosage: UNK
     Route: 065
     Dates: start: 20161216, end: 20161218
  16. PROTHIPENDYL HYDROCHLORIDE [Suspect]
     Active Substance: PROTHIPENDYL HYDROCHLORIDE
     Indication: Product used for unknown indication
     Dosage: 40 MG, UNK
     Route: 065
     Dates: start: 20161216, end: 20161219
  17. PROTHIPENDYL HYDROCHLORIDE [Suspect]
     Active Substance: PROTHIPENDYL HYDROCHLORIDE
     Dosage: 80 MG, UNK
     Route: 065
     Dates: start: 20161215, end: 20161215
  18. PROTHIPENDYL HYDROCHLORIDE [Suspect]
     Active Substance: PROTHIPENDYL HYDROCHLORIDE
     Dosage: 80 MG, UNK
     Route: 065
     Dates: start: 20161220, end: 20161226
  19. ZOLPIDEM TARTRATE [Suspect]
     Active Substance: ZOLPIDEM TARTRATE
     Indication: Product used for unknown indication
     Dosage: 5 MG, UNK
     Route: 065
     Dates: start: 20161212, end: 20161213
  20. ZOLPIDEM TARTRATE [Suspect]
     Active Substance: ZOLPIDEM TARTRATE
     Dosage: 10 MG, UNK
     Route: 065
     Dates: start: 20161214, end: 20161214
  21. ZOLPIDEM TARTRATE [Suspect]
     Active Substance: ZOLPIDEM TARTRATE
     Dosage: 5 MG, UNK
     Route: 065
     Dates: start: 20170113, end: 20170123
  22. ZOLPIDEM TARTRATE [Suspect]
     Active Substance: ZOLPIDEM TARTRATE
     Dosage: 5 MG, UNK
     Route: 065
     Dates: start: 20170113, end: 20170121
  23. ABILIFY [Suspect]
     Active Substance: ARIPIPRAZOLE
     Indication: Product used for unknown indication
     Dosage: 5 MG, QD
     Route: 065
     Dates: start: 20161214, end: 20161221
  24. INDERAL [Suspect]
     Active Substance: PROPRANOLOL HYDROCHLORIDE
     Indication: Product used for unknown indication
     Dosage: 10-20 MG
     Route: 065
     Dates: start: 20161208, end: 20161213
  25. INDERAL [Suspect]
     Active Substance: PROPRANOLOL HYDROCHLORIDE
     Dosage: 10 MG, UNK
     Route: 065
     Dates: start: 20161215, end: 20161217
  26. INDERAL [Suspect]
     Active Substance: PROPRANOLOL HYDROCHLORIDE
     Dosage: 10 MG, UNK
     Route: 065
     Dates: start: 20170111, end: 20170113
  27. INDERAL [Suspect]
     Active Substance: PROPRANOLOL HYDROCHLORIDE
     Dosage: 10 MG, UNK
     Route: 065
     Dates: start: 20161231, end: 20161231
  28. INDERAL [Suspect]
     Active Substance: PROPRANOLOL HYDROCHLORIDE
     Dosage: 10 MG, UNK
     Route: 065
     Dates: start: 20161220, end: 20161226
  29. OXAZEPAM [Suspect]
     Active Substance: OXAZEPAM
     Indication: Product used for unknown indication
     Dosage: 30 MG, UNK
     Route: 065
     Dates: start: 20161221, end: 20161223
  30. OXAZEPAM [Suspect]
     Active Substance: OXAZEPAM
     Dosage: 15 MG, UNK
     Route: 065
     Dates: start: 20161208, end: 20161208
  31. OXAZEPAM [Suspect]
     Active Substance: OXAZEPAM
     Dosage: 15 MG, UNK
     Route: 065
     Dates: start: 20161224, end: 20161224
  32. CHOLECALCIFEROL\CHOLESTEROL [Suspect]
     Active Substance: CHOLECALCIFEROL\CHOLESTEROL
     Indication: Product used for unknown indication
     Dosage: 30 GTT, UNK
     Route: 065
     Dates: start: 2016
  33. DOXAZOSIN [Concomitant]
     Active Substance: DOXAZOSIN MESYLATE
     Indication: Product used for unknown indication
     Dosage: 1 MG
     Route: 065
     Dates: start: 20170103, end: 20170106
  34. DOXAZOSIN [Concomitant]
     Active Substance: DOXAZOSIN MESYLATE
     Dosage: 2 MG
     Route: 065
     Dates: start: 20170107, end: 20170108
  35. DOXAZOSIN [Concomitant]
     Active Substance: DOXAZOSIN MESYLATE
     Dosage: 2 MG
     Route: 065
     Dates: start: 20161223, end: 20161224
  36. CITALOPRAM [Concomitant]
     Active Substance: CITALOPRAM\CITALOPRAM HYDROBROMIDE
     Indication: Product used for unknown indication
     Dosage: 10 MG, UNK
     Route: 065
     Dates: start: 20161223, end: 20161224
  37. CITALOPRAM [Concomitant]
     Active Substance: CITALOPRAM\CITALOPRAM HYDROBROMIDE
     Dosage: 20 MG, UNK
     Route: 065
     Dates: start: 20161225, end: 20161225
  38. Temesta [Concomitant]
     Indication: Product used for unknown indication
     Dosage: 0.5 MG
     Route: 065
     Dates: start: 20161227, end: 20161227
  39. Temesta [Concomitant]
     Dosage: 1.5 MG
     Route: 065
     Dates: start: 20161225, end: 20161225
  40. Temesta [Concomitant]
     Dosage: 1 MG, UNK
     Route: 065
     Dates: start: 20161223, end: 20161224
  41. Temesta [Concomitant]
     Dosage: 1 MG
     Route: 065
     Dates: start: 20161226, end: 20161226
  42. Kalioral [Concomitant]
     Indication: Product used for unknown indication
     Dosage: 1 MG, UNK
     Route: 065
     Dates: start: 20161206, end: 20161209

REACTIONS (5)
  - Visual impairment [Recovered/Resolved]
  - Nightmare [Unknown]
  - Vision blurred [Unknown]
  - Urinary retention [Recovered/Resolved]
  - Galactorrhoea [Recovering/Resolving]

NARRATIVE: CASE EVENT DATE: 20161215
